FAERS Safety Report 5278739-8 (Version None)
Quarter: 2007Q1

REPORT INFORMATION
  Report Type: 
  Country: None (occurrence: None)
  Receive Date: 20070328
  Receipt Date: 20070326
  Transmission Date: 20070707
  Serious: Yes (Death, Other)
  Sender: FDA-Public Use
  Company Number: DE-SANOFI-SYNTHELABO-F01200700414

PATIENT

DRUGS (4)
  1. CAPECITABINE [Suspect]
     Dosage: 750 MG/M2
     Route: 048
  2. GEMCITABINE [Suspect]
     Dosage: 100 MG/M2 WEEKLY THEN 1000 MG/M2  D1+D8 DURING 3 WEEK CYCLE
     Route: 042
  3. OXALIPLATIN [Suspect]
     Indication: BILE DUCT CANCER
     Dosage: UNK
     Route: 042
  4. RADIOTHERAPY [Concomitant]

REACTIONS (7)
  - CHOLANGITIS [None]
  - FATIGUE [None]
  - LEUKOPENIA [None]
  - NAUSEA [None]
  - SEPTIC SHOCK [None]
  - THROMBOCYTOPENIA [None]
  - TRANSAMINASES INCREASED [None]
